FAERS Safety Report 20758654 (Version 1)
Quarter: 2022Q2

REPORT INFORMATION
  Report Type: Spontaneous
  Country: US (occurrence: US)
  Receive Date: 20220427
  Receipt Date: 20220427
  Transmission Date: 20220721
  Serious: No
  Sender: FDA-Public Use
  Company Number: US-PFIZER INC-202101449211

PATIENT
  Age: 62 Year
  Sex: Male
  Weight: 63.5 kg

DRUGS (1)
  1. CHANTIX [Suspect]
     Active Substance: VARENICLINE TARTRATE
     Indication: Smoking cessation therapy
     Dosage: 1 MG, 2X/DAY (1 TABLET IN THE MORNING AND 1 IN THE EVENING)
     Dates: end: 202110

REACTIONS (2)
  - Tremor [Not Recovered/Not Resolved]
  - Disturbance in attention [Unknown]
